FAERS Safety Report 14964410 (Version 2)
Quarter: 2018Q2

REPORT INFORMATION
  Report Type: Spontaneous
  Country: KR (occurrence: KR)
  Receive Date: 20180601
  Receipt Date: 20180611
  Transmission Date: 20180711
  Serious: Yes (Other)
  Sender: FDA-Public Use
  Company Number: KR-BAYER-2018-099288

PATIENT
  Age: 62 Year
  Sex: Male

DRUGS (2)
  1. NEXAVAR [Suspect]
     Active Substance: SORAFENIB
     Dosage: 400 MG, BID
     Dates: start: 2016
  2. TEGAFUR [Concomitant]
     Active Substance: TEGAFUR

REACTIONS (4)
  - Transcatheter arterial chemoembolisation [None]
  - Abdominal pain upper [None]
  - Disease progression [None]
  - Metastases to diaphragm [None]
